FAERS Safety Report 8775678 (Version 1)
Quarter: 2012Q4

REPORT INFORMATION
  Report Type: 
  Country: CO (occurrence: CO)
  Receive Date: 20120907
  Receipt Date: 20120907
  Transmission Date: 20130627
  Serious: Yes (Death, Hospitalization)
  Sender: FDA-Public Use
  Company Number: CO-MPIJNJ-2012-06164

PATIENT

DRUGS (3)
  1. VELCADE [Suspect]
     Indication: MULTIPLE MYELOMA
     Dosage: UNK
     Route: 065
     Dates: start: 20120306
  2. MELPHALAN [Concomitant]
  3. PREDNISOLONE [Concomitant]

REACTIONS (3)
  - Death [Fatal]
  - Fluid retention [Unknown]
  - Haematoma [Unknown]
